FAERS Safety Report 9878786 (Version 3)
Quarter: 2014Q3

REPORT INFORMATION
  Report Type: Spontaneous
  Country: US (occurrence: US)
  Receive Date: 20140206
  Receipt Date: 20140729
  Transmission Date: 20150326
  Serious: Yes (Hospitalization)
  Sender: FDA-Public Use
  Company Number: US-GLAXOSMITHKLINE-A1059751A

PATIENT
  Age: 55 Year
  Sex: Male

DRUGS (2)
  1. COUMADIN [Concomitant]
     Active Substance: WARFARIN SODIUM
  2. FLOLAN [Suspect]
     Active Substance: EPOPROSTENOL SODIUM
     Indication: PULMONARY ARTERIAL HYPERTENSION
     Dosage: 17.7NGKM CONTINUOUS
     Dates: start: 20070405

REACTIONS (4)
  - Device related infection [Unknown]
  - Central venous catheterisation [Unknown]
  - Infection [Unknown]
  - Medical device complication [Unknown]

NARRATIVE: CASE EVENT DATE: 20140110
